FAERS Safety Report 10330247 (Version 3)
Quarter: 2014Q3

REPORT INFORMATION
  Report Type: Spontaneous
  Country: CH (occurrence: CH)
  Receive Date: 20140721
  Receipt Date: 20140908
  Transmission Date: 20150326
  Serious: Yes (Other)
  Sender: FDA-Public Use
  Company Number: CH-GILEAD-2014-0109359

PATIENT
  Age: 51 Year
  Sex: Male
  Weight: 101 kg

DRUGS (9)
  1. TRITTICO [Concomitant]
     Active Substance: TRAZODONE HYDROCHLORIDE
     Indication: DEPRESSION
     Dosage: 100 MG, QHS
     Route: 048
     Dates: start: 201205
  2. PEGASYS [Suspect]
     Active Substance: PEGINTERFERON ALFA-2A
     Indication: HEPATITIS C
     Dosage: 1 DF, Q1WK
     Route: 065
     Dates: start: 20140611
  3. TORASEM [Concomitant]
     Active Substance: TORSEMIDE
     Indication: OEDEMA
     Dosage: 10 MG, QD
     Route: 048
     Dates: start: 201301
  4. STILNOX [Concomitant]
     Active Substance: ZOLPIDEM TARTRATE
     Indication: SLEEP DISORDER
     Dosage: 10 MG, QD
     Route: 048
     Dates: start: 201205
  5. INDERAL [Concomitant]
     Active Substance: PROPRANOLOL HYDROCHLORIDE
     Indication: VARICES OESOPHAGEAL
     Dosage: 15 MG, QD
     Route: 048
     Dates: start: 20140506
  6. SOFOSBUVIR [Suspect]
     Active Substance: SOFOSBUVIR
     Indication: HEPATITIS C
     Dosage: 400 MG, QD
     Route: 048
     Dates: start: 20140611
  7. PANTOZOL [Concomitant]
     Active Substance: PANTOPRAZOLE SODIUM
     Indication: GASTRITIS
     Dosage: 40 MG, QD
     Route: 048
     Dates: start: 201201
  8. VITAMIN D [Concomitant]
     Active Substance: CHOLECALCIFEROL
     Indication: PRODUCT USED FOR UNKNOWN INDICATION
     Dosage: 15 DF, Q1WK
  9. COPEGUS [Suspect]
     Active Substance: RIBAVIRIN
     Indication: HEPATITIS C
     Dosage: 600 MG, QD
     Route: 048
     Dates: start: 20140611

REACTIONS (3)
  - Erythema [Unknown]
  - Venous thrombosis [Recovering/Resolving]
  - Thrombophlebitis superficial [Recovering/Resolving]

NARRATIVE: CASE EVENT DATE: 20140717
